FAERS Safety Report 9236879 (Version 5)
Quarter: 2014Q1

REPORT INFORMATION
  Report Type: Spontaneous
  Country: US (occurrence: US)
  Receive Date: 20130417
  Receipt Date: 20140106
  Transmission Date: 20141002
  Serious: Yes (Death, Other)
  Sender: FDA-Public Use
  Company Number: US-BRISTOL-MYERS SQUIBB COMPANY-18766048

PATIENT
  Age: 72 Year
  Sex: Male

DRUGS (18)
  1. BYETTA [Suspect]
     Indication: TYPE 2 DIABETES MELLITUS
     Dosage: UNTIL 1MAY07
     Dates: start: 20050830, end: 20070501
  2. JANUVIA [Suspect]
     Indication: TYPE 2 DIABETES MELLITUS
     Dosage: UNTIL 27AUG10
     Dates: start: 20070611, end: 20100827
  3. ASPIRIN [Concomitant]
  4. NIACIN [Concomitant]
  5. WELLBUTRIN [Concomitant]
  6. CARVEDILOL [Concomitant]
     Dosage: 1DF=6.25 UNITS NOS
  7. ZOCOR [Concomitant]
  8. LASIX [Concomitant]
     Dosage: DOSE 60MG
     Route: 042
  9. MULTIVITAMIN [Concomitant]
  10. HUMALOG [Concomitant]
  11. LEVEMIR [Concomitant]
     Dosage: 1DF=85 UNITS
     Route: 058
  12. NORCO [Concomitant]
     Indication: PAIN
     Dosage: 1DF=10/325 UNITS NOS
     Route: 048
  13. ALBUMIN [Concomitant]
     Route: 042
  14. DOPAMINE [Concomitant]
  15. FLONASE [Concomitant]
     Dosage: ONE SPRAY EACH NOSTRIL
     Route: 045
  16. LANTUS [Concomitant]
     Route: 058
  17. ZAROXOLYN [Concomitant]
     Route: 048
  18. PROTONIX [Concomitant]
     Route: 048

REACTIONS (2)
  - Pancreatic carcinoma metastatic [Fatal]
  - Lung neoplasm malignant [Unknown]
